FAERS Safety Report 6752323-9 (Version None)
Quarter: 2010Q2

REPORT INFORMATION
  Report Type: 
  Country: None (occurrence: None)
  Receive Date: 20100602
  Receipt Date: 20100527
  Transmission Date: 20101027
  Serious: Yes (Life-Threatening, Hospitalization)
  Sender: FDA-Public Use
  Company Number: GXKR2010ES05991

PATIENT
  Age: 77 Year
  Sex: Female

DRUGS (6)
  1. RIMSTAR (NGX) [Suspect]
     Indication: LYMPH NODE TUBERCULOSIS
     Dosage: UNK
     Route: 048
     Dates: start: 20091212, end: 20100108
  2. DIGOXIN [Concomitant]
     Indication: ATRIAL FIBRILLATION
     Dosage: 1.25 MG, QW
     Route: 048
  3. OMEPRAZOLE [Concomitant]
     Dosage: 20 MG, UNK
     Route: 048
  4. COAPROVEL [Concomitant]
     Indication: HYPERTENSION
     Dosage: 300 MG, UNK
     Route: 048
  5. SINTROM [Concomitant]
     Indication: ATRIAL FIBRILLATION
     Dosage: 1 DF, QD
  6. UNI MASDIL [Concomitant]
     Indication: ATRIAL FIBRILLATION
     Dosage: 200 MG, UNK

REACTIONS (2)
  - DIALYSIS [None]
  - TUBULOINTERSTITIAL NEPHRITIS [None]
